FAERS Safety Report 14172550 (Version 1)
Quarter: 2017Q4

REPORT INFORMATION
  Report Type: Spontaneous
  Country: US (occurrence: US)
  Receive Date: 20171108
  Receipt Date: 20171108
  Transmission Date: 20180321
  Serious: Yes (Other)
  Sender: FDA-Public Use
  Company Number: None

PATIENT
  Age: 72 Year
  Sex: Male
  Weight: 79.65 kg

DRUGS (9)
  1. LISINOPRIL. [Concomitant]
     Active Substance: LISINOPRIL
  2. VITAMIN B12 [Concomitant]
     Active Substance: CYANOCOBALAMIN
  3. TAMOXIFEN [Concomitant]
     Active Substance: TAMOXIFEN
  4. FINASTERIDE TABLETS USP [Suspect]
     Active Substance: FINASTERIDE
     Indication: PROSTATOMEGALY
     Dosage: ?          QUANTITY:1 TABLET(S);?
     Route: 048
     Dates: start: 20081201, end: 20171101
  5. LOVASTATIN. [Concomitant]
     Active Substance: LOVASTATIN
  6. TUMERIC [Concomitant]
     Active Substance: HERBALS\TURMERIC
  7. FLAXSEED [Concomitant]
     Active Substance: FLAX SEED
  8. TERAZOSIN [Concomitant]
     Active Substance: TERAZOSIN\TERAZOSIN HYDROCHLORIDE
  9. ENTERIC ASPIRIN [Concomitant]
     Active Substance: ASPIRIN

REACTIONS (1)
  - Breast cancer male [None]

NARRATIVE: CASE EVENT DATE: 20171011
